FAERS Safety Report 7175575-2 (Version None)
Quarter: 2010Q4

REPORT INFORMATION
  Report Type: 
  Country: None (occurrence: None)
  Receive Date: 20101220
  Receipt Date: 20100322
  Transmission Date: 20110411
  Serious: Yes (Other)
  Sender: FDA-Public Use
  Company Number: US-AMGEN-QUU401813

PATIENT

DRUGS (11)
  1. ENBREL [Suspect]
     Indication: RHEUMATOID ARTHRITIS
     Dosage: 50 MG, QWK
  2. METHOTREXATE [Concomitant]
  3. FOLIC ACID [Concomitant]
  4. ALENDRONATE SODIUM [Concomitant]
  5. CLOPIDOGREL BISULFATE [Concomitant]
  6. METFORMIN HYDROCHLORIDE [Concomitant]
  7. EZETIMIBE [Concomitant]
  8. LOSARTAN POTASSIUM [Concomitant]
  9. AMLODIPINE BESYLATE [Concomitant]
  10. ROSUVASTATIN CALCIUM [Concomitant]
  11. ESCITALOPRAM [Concomitant]

REACTIONS (1)
  - TUBERCULOSIS [None]
